FAERS Safety Report 7916469-1 (Version None)
Quarter: 2011Q4

REPORT INFORMATION
  Report Type: 
  Country: None (occurrence: None)
  Receive Date: 20111114
  Receipt Date: 20111028
  Transmission Date: 20120403
  Serious: Yes (Other)
  Sender: FDA-Public Use
  Company Number: US-006691

PATIENT
  Sex: Female
  Weight: 63.5036 kg

DRUGS (5)
  1. PROSED EC (NOT SPECIFIED) [Suspect]
     Indication: POLLAKIURIA
     Dosage: (ONE TABLET 4 TIMES A DAY ORAL)
     Route: 048
     Dates: start: 20101001, end: 20111027
  2. TOVIAZ [Concomitant]
  3. VIMPAT [Concomitant]
  4. SPIRONOLACTONE [Concomitant]
  5. MINOCYCLINE HCL [Concomitant]

REACTIONS (2)
  - CONVULSION [None]
  - METAL POISONING [None]
